FAERS Safety Report 5484912-6 (Version None)
Quarter: 2007Q4

REPORT INFORMATION
  Report Type: 
  Country: None (occurrence: None)
  Receive Date: 20071011
  Receipt Date: 20070915
  Transmission Date: 20080405
  Serious: No
  Sender: FDA-Public Use
  Company Number: WAES 0709USA02613

PATIENT
  Age: 55 Year
  Sex: Female

DRUGS (1)
  1. SOLN IVOMEC 0.08% [Suspect]
     Indication: DRUG ADMINISTRATION ERROR
     Dosage: TOP
     Route: 061
     Dates: start: 20070915, end: 20070915

REACTIONS (2)
  - ACCIDENTAL EXPOSURE [None]
  - HYPOAESTHESIA [None]
